FAERS Safety Report 9529569 (Version 2)
Quarter: 2014Q1

REPORT INFORMATION
  Report Type: Spontaneous
  Country: FR (occurrence: FR)
  Receive Date: 20130917
  Receipt Date: 20140224
  Transmission Date: 20141002
  Serious: Yes (Hospitalization)
  Sender: FDA-Public Use
  Company Number: CHNY2013FR001941

PATIENT
  Age: 83 Year
  Sex: Female

DRUGS (6)
  1. LAMISIL [Suspect]
     Indication: ONYCHOMYCOSIS
     Dosage: 250 MG, UNK
     Route: 048
     Dates: end: 20130610
  2. AMIODARONE [Concomitant]
     Dosage: UNK UKN, UNK
  3. ATARAX                                  /CAN/ [Concomitant]
     Dosage: UNK UKN, UNK
  4. INEXIUM//ESOMEPRAZOLE MAGNESIUM [Concomitant]
     Dosage: UNK UKN, UNK
  5. KARDEGIC [Concomitant]
     Dosage: UNK UKN, UNK
  6. SIMVASTATINE [Concomitant]
     Dosage: UNK UKN, UNK

REACTIONS (3)
  - Rash maculo-papular [Unknown]
  - Rash [Unknown]
  - Eosinophilia [Recovered/Resolved]
